FAERS Safety Report 15019785 (Version 1)
Quarter: 2018Q2

REPORT INFORMATION
  Report Type: Spontaneous
  Country: IT (occurrence: IT)
  Receive Date: 20180618
  Receipt Date: 20180618
  Transmission Date: 20180711
  Serious: Yes (Hospitalization, Other)
  Sender: FDA-Public Use
  Company Number: IT-SUN PHARMACEUTICAL INDUSTRIES LTD-2018RR-175748

PATIENT
  Age: 76 Year
  Sex: Male

DRUGS (2)
  1. ATORVASTATIN [Suspect]
     Active Substance: ATORVASTATIN
     Indication: PRODUCT USED FOR UNKNOWN INDICATION
     Dosage: REGIMEN 1 ()
     Route: 065
  2. FLU SEASONAL TIV DRESDEN SOLUTION FOR INJECTION [Interacting]
     Active Substance: INFLUENZA VIRUS VACCINE TRIVALENT TYPE A+B
     Indication: PROPHYLAXIS
     Dosage: ()
     Route: 065

REACTIONS (9)
  - Dermatitis [Unknown]
  - Stevens-Johnson syndrome [Unknown]
  - Biopsy skin abnormal [Unknown]
  - Rhabdomyolysis [Unknown]
  - Skin exfoliation [Unknown]
  - Drug interaction [Unknown]
  - Renal failure [Unknown]
  - Skin necrosis [Unknown]
  - Rash [Unknown]
